FAERS Safety Report 9364602 (Version 1)
Quarter: 2013Q2

REPORT INFORMATION
  Report Type: Report from Study
  Country: CA (occurrence: CA)
  Receive Date: 20130624
  Receipt Date: 20130624
  Transmission Date: 20140414
  Serious: Yes (Death)
  Sender: FDA-Public Use
  Company Number: PHHY2013CA048280

PATIENT
  Age: 82 Year
  Sex: Male

DRUGS (3)
  1. SANDOSTATIN [Suspect]
     Indication: LUNG NEOPLASM MALIGNANT
     Dosage: UNK UKN, UNK
     Route: 058
     Dates: start: 20130508
  2. SANDOSTATIN [Suspect]
     Dosage: 30 MG ONCE A MONTH
     Route: 030
     Dates: start: 20130514, end: 20130514
  3. SANDOSTATIN LAR [Suspect]
     Indication: LUNG NEOPLASM MALIGNANT
     Dosage: 30 MG, ONCE A MONTH
     Route: 030
     Dates: start: 20130514

REACTIONS (2)
  - Death [Fatal]
  - Diarrhoea [Unknown]
